FAERS Safety Report 4471528-3 (Version None)
Quarter: 2004Q4

REPORT INFORMATION
  Report Type: 
  Country: None (occurrence: None)
  Receive Date: 20041007
  Receipt Date: 20041007
  Transmission Date: 20050328
  Serious: Yes (Life-Threatening, Hospitalization)
  Sender: FDA-Public Use
  Company Number: None

PATIENT
  Age: 6 Year
  Sex: Male
  Weight: 24.1 kg

DRUGS (5)
  1. TRAVASOL 10% [Suspect]
     Indication: MALABSORPTION
     Dosage: 31 GM OVER 13 HOURS IV
     Route: 042
     Dates: start: 20040422
  2. INTRALIPID 10% [Suspect]
     Indication: MALABSORPTION
     Dosage: 3220ML OVER 13 HOURS IV
     Route: 042
     Dates: start: 20040422, end: 20040915
  3. 7% DEXTROSE [Concomitant]
  4. 3/4 NORMAL SALINE [Concomitant]
  5. POTASSIUM ACETATE [Concomitant]

REACTIONS (6)
  - DISSEMINATED INTRAVASCULAR COAGULATION [None]
  - HAEMORRHAGE [None]
  - HYPERBILIRUBINAEMIA [None]
  - LIVER FUNCTION TEST ABNORMAL [None]
  - PYREXIA [None]
  - VIRAL INFECTION [None]
